FAERS Safety Report 20144496 (Version 1)
Quarter: 2021Q4

REPORT INFORMATION
  Report Type: Other
  Country: AR (occurrence: AR)
  Receive Date: 20211203
  Receipt Date: 20211203
  Transmission Date: 20220303
  Serious: Yes (Hospitalization, Disabling, Other)
  Sender: FDA-Public Use
  Company Number: AR-002147023-NVSC2020AR242343

PATIENT
  Sex: Female

DRUGS (3)
  1. XOLAIR [Suspect]
     Active Substance: OMALIZUMAB
     Indication: Asthma
     Route: 058
     Dates: start: 20190105
  2. XOLAIR [Suspect]
     Active Substance: OMALIZUMAB
     Route: 058
  3. XOLAIR [Suspect]
     Active Substance: OMALIZUMAB
     Route: 058
     Dates: end: 20211119

REACTIONS (9)
  - Blindness [Unknown]
  - Cataract [Unknown]
  - Pneumonia [Unknown]
  - Memory impairment [Unknown]
  - Hypersensitivity [Unknown]
  - Infection [Unknown]
  - Condition aggravated [Unknown]
  - Extra dose administered [Unknown]
  - Therapeutic product effect incomplete [Unknown]
